FAERS Safety Report 5124524-7 (Version None)
Quarter: 2006Q3

REPORT INFORMATION
  Report Type: 
  Country: None (occurrence: None)
  Receive Date: 20060821
  Receipt Date: 20060427
  Transmission Date: 20061208
  Serious: No
  Sender: FDA-Public Use
  Company Number: TPA2006A00742

PATIENT
  Age: 60 Year
  Sex: Female
  Weight: 56.6996 kg

DRUGS (4)
  1. ROZEREM [Suspect]
     Indication: INSOMNIA
     Dosage: 8 MG QHS PER ORAL
     Route: 048
     Dates: start: 20060427
  2. MYLANTA (CALCIUM CARBONATE) [Concomitant]
  3. SYNTHROID [Concomitant]
  4. PLAQUENIL [Concomitant]

REACTIONS (7)
  - BALANCE DISORDER [None]
  - DISTURBANCE IN ATTENTION [None]
  - DIZZINESS [None]
  - NAUSEA [None]
  - POOR QUALITY SLEEP [None]
  - READING DISORDER [None]
  - VISION BLURRED [None]
